FAERS Safety Report 6039976-8 (Version None)
Quarter: 2009Q1

REPORT INFORMATION
  Report Type: 
  Country: None (occurrence: None)
  Receive Date: 20090116
  Receipt Date: 20071106
  Transmission Date: 20090719
  Serious: No
  Sender: FDA-Public Use
  Company Number: US-BRISTOL-MYERS SQUIBB COMPANY-13971916

PATIENT
  Age: 43 Year
  Sex: Female
  Weight: 73 kg

DRUGS (1)
  1. ABILIFY [Suspect]
     Indication: BIPOLAR DISORDER
     Dosage: PREVIOUS DOSING: 2MG DAILY, 5MG DAILY, 10MG DAILY. CURRENT DOSE TAKEN FOR LAST 3 MONTHS.
     Route: 048
     Dates: start: 20070801

REACTIONS (1)
  - ARTHRALGIA [None]
